FAERS Safety Report 11157265 (Version 2)
Quarter: 2015Q3

REPORT INFORMATION
  Report Type: Spontaneous
  Country: US (occurrence: US)
  Receive Date: 20150602
  Receipt Date: 20150817
  Transmission Date: 20151125
  Serious: No
  Sender: FDA-Public Use
  Company Number: US-ASTRAZENECA-2014SE53583

PATIENT
  Age: 65 Year
  Sex: Female
  Weight: 158.7 kg

DRUGS (4)
  1. NOVOLOG [Concomitant]
     Active Substance: INSULIN ASPART
  2. SYMLIN [Suspect]
     Active Substance: PRAMLINTIDE ACETATE
     Indication: TYPE 2 DIABETES MELLITUS
     Route: 058
  3. LEVEMIR [Concomitant]
     Active Substance: INSULIN DETEMIR
  4. SYMLIN [Suspect]
     Active Substance: PRAMLINTIDE ACETATE
     Indication: TYPE 2 DIABETES MELLITUS
     Dosage: 30 UG, THREE TIMES A DAY, 1 MG/1.5 ML
     Route: 058
     Dates: start: 201405

REACTIONS (9)
  - Diarrhoea [Unknown]
  - Blood glucose increased [Unknown]
  - Abdominal pain upper [Unknown]
  - Musculoskeletal discomfort [Unknown]
  - Vomiting [Recovered/Resolved]
  - Nausea [Unknown]
  - Dysgeusia [Unknown]
  - Skin disorder [Unknown]
  - Constipation [Unknown]

NARRATIVE: CASE EVENT DATE: 20140717
